FAERS Safety Report 7668439-9 (Version None)
Quarter: 2011Q3

REPORT INFORMATION
  Report Type: 
  Country: None (occurrence: None)
  Receive Date: 20110808
  Receipt Date: 20110729
  Transmission Date: 20111222
  Serious: Yes (Death, Hospitalization, Other)
  Sender: FDA-Public Use
  Company Number: IT-BAYER-201026653GPV

PATIENT
  Age: 68 Year
  Sex: Male
  Weight: 94 kg

DRUGS (47)
  1. LISINOPRIL [Concomitant]
     Indication: HYPERTENSION
     Dosage: 5 MG (DAILY DOSE), ,
     Dates: end: 20100516
  2. PREFOLIC [Concomitant]
     Indication: ANAEMIA PROPHYLAXIS
     Dosage: 15 MG (DAILY DOSE), ,
     Dates: start: 20100510, end: 20100518
  3. IDROPLURIVIT [Concomitant]
     Dosage: 45 GTT (DAILY DOSE), ,
     Dates: start: 20100522, end: 20100525
  4. BICARBONAT [Concomitant]
     Indication: ASCITES
     Dosage: 100 ML (DAILY DOSE), ,
     Dates: start: 20100521, end: 20100521
  5. SUCRALFIN [Concomitant]
     Indication: GASTROINTESTINAL ANGIODYSPLASIA
     Dosage: 2 SACHET
     Dates: start: 20100524, end: 20100524
  6. PIPERACILLIN AND TAZOBACTAM [Concomitant]
     Dosage: 13.5 G EV
     Dates: start: 20100529, end: 20100529
  7. OMEPRAZOLE [Concomitant]
     Indication: PROPHYLAXIS
     Dosage: 20 MG (DAILY DOSE), , ORAL
     Route: 048
     Dates: end: 20100331
  8. ALBUMINA HUMANA [Concomitant]
     Dosage: 300 ML (DAILY DOSE), ,
     Dates: start: 20100519, end: 20100520
  9. ZARIVIZ [Concomitant]
     Dosage: 1 VIAL
     Dates: start: 20100527, end: 20100527
  10. GLUCOSAE 5% [Concomitant]
     Indication: ASCITES
     Dosage: 500 ML EV
     Dates: start: 20100521, end: 20100522
  11. OMEPRAZOLE [Concomitant]
     Dosage: 20 MG (DAILY DOSE), , ORAL
     Route: 048
     Dates: start: 20100529, end: 20100529
  12. SORAFENIB (RAF KINASE INHIBITOR) [Suspect]
     Indication: HEPATIC NEOPLASM MALIGNANT
     Dosage: 400 MG, BID
     Route: 048
     Dates: start: 20100414, end: 20100504
  13. ZARIVIZ [Concomitant]
     Dosage: 3 VIALS
     Dates: start: 20100518, end: 20100526
  14. GLIPRESSINA [Concomitant]
     Dosage: 6 MG EV
     Dates: start: 20100520, end: 20100523
  15. NORMIX [Concomitant]
     Dosage: 600 MG (DAILY DOSE), ,
     Dates: start: 20100520, end: 20100528
  16. IDROPLURIVIT [Concomitant]
     Indication: ASCITES
     Dosage: 30 GTT (DAILY DOSE), ,
     Dates: start: 20100521, end: 20100521
  17. SUCRALFIN [Concomitant]
     Indication: GASTRIC DISORDER
     Dosage: 3 SACHET
     Dates: start: 20100525, end: 20100528
  18. PLACEBO [Suspect]
     Indication: HEPATIC NEOPLASM MALIGNANT
     Dosage: 150 MG, QD
     Route: 048
     Dates: start: 20100414, end: 20100504
  19. ALBUMINA HUMANA [Concomitant]
     Dosage: 150 ML (DAILY DOSE), ,
     Dates: start: 20100526, end: 20100527
  20. LAEVOLAC [Concomitant]
     Indication: ASCITES
     Dosage: 1 SPOON
     Dates: start: 20100517, end: 20100519
  21. LAEVOLAC [Concomitant]
     Dosage: 2 SPOONS
     Dates: start: 20100520, end: 20100528
  22. RED BLOOD CELLS, CONCENTRATED [Concomitant]
     Indication: ANAEMIA
     Dates: start: 20100527, end: 20100527
  23. OMEPRAZOLE [Concomitant]
     Dosage: 20 MG (DAILY DOSE), ,
     Dates: end: 20100516
  24. METOCLOPRAMIDE HYDROCHLORIDE [Concomitant]
     Indication: VOMITING
     Dosage: 10 MG (DAILY DOSE), PRN,
     Dates: start: 20100414, end: 20100516
  25. ALBUMINA HUMANA [Concomitant]
     Dosage: 300 ML (DAILY DOSE), ,
     Dates: start: 20100522, end: 20100522
  26. GLIPRESSINA [Concomitant]
     Indication: ASCITES
     Dosage: 4 MG EV
     Dates: start: 20100519, end: 20100519
  27. GLUCOSAE 5% [Concomitant]
     Dosage: 500 ML
     Dates: start: 20100527, end: 20100530
  28. OMEPRAZOLE [Concomitant]
     Dosage: 40 MG (DAILY DOSE), , SUBCUTANEOUS
     Route: 058
     Dates: start: 20100529, end: 20100530
  29. SUCRALFIN [Concomitant]
     Dosage: 2 SACHET
     Dates: start: 20100529, end: 20100529
  30. RANITIDINE HCL [Concomitant]
     Dosage: 300 MG (DAILY DOSE), , ORAL
     Route: 048
     Dates: start: 20100517, end: 20100523
  31. ZARIVIZ [Concomitant]
     Indication: ASCITES
     Dosage: 1 VIAL EV
     Dates: start: 20100517, end: 20100517
  32. KAYEXALATE [Concomitant]
     Indication: ASCITES
     Dosage: 1 SPOON
     Dates: start: 20100520, end: 20100522
  33. OMEPRAZOLE [Concomitant]
     Indication: GASTROINTESTINAL ANGIODYSPLASIA
     Dosage: 20 MG (DAILY DOSE), , ORAL
     Route: 048
     Dates: start: 20100524, end: 20100524
  34. OMEPRAZOLE [Concomitant]
     Indication: GASTRIC DISORDER
     Dosage: 40 MG (DAILY DOSE), , ORAL
     Route: 048
     Dates: start: 20100525, end: 20100528
  35. PIPERACILLIN AND TAZOBACTAM [Concomitant]
     Indication: ASCITES
     Dosage: 9 G EV
     Dates: start: 20100527, end: 20100528
  36. RED BLOOD CELLS, CONCENTRATED [Concomitant]
     Dates: start: 20100529, end: 20100529
  37. GENERAL NUTRIENTS [Concomitant]
     Indication: SUPPLEMENTATION THERAPY
     Dates: end: 20100331
  38. RANITIDINE HCL [Concomitant]
     Indication: PROPHYLAXIS
     Dosage: 150 MG (DAILY DOSE), , ORAL
     Route: 048
     Dates: start: 20100401, end: 20100516
  39. NORMIX [Concomitant]
     Indication: ASCITES
     Dosage: 400 MG (DAILY DOSE), ,
     Dates: start: 20100519, end: 20100519
  40. IDROPLURIVIT [Concomitant]
     Dosage: 45 GTT (DAILY DOSE), ,
     Dates: start: 20100527, end: 20100528
  41. RANIDIL [Concomitant]
     Indication: PROPHYLAXIS
     Dosage: 300 MG (DAILY DOSE), QD, ORAL
     Route: 048
     Dates: start: 20100517, end: 20100523
  42. PROPRANOLOL [Concomitant]
     Indication: HYPERTENSION
     Dosage: 20 MG (DAILY DOSE), , ORAL
     Route: 048
     Dates: end: 20100529
  43. ALBUMINA HUMANA [Concomitant]
     Indication: ASCITES
     Dosage: PER WEEK
     Dates: start: 20100510, end: 20100516
  44. ALBUMINA HUMANA [Concomitant]
     Dosage: 250 ML (DAILY DOSE), ,
     Dates: start: 20100521, end: 20100521
  45. NORMIX [Concomitant]
     Dosage: 400 MG (DAILY DOSE), ,
     Dates: start: 20100529, end: 20100529
  46. IDROPLURIVIT [Concomitant]
     Dosage: 30 GTT (DAILY DOSE), ,
     Dates: start: 20100526, end: 20100526
  47. PIPERACILLIN AND TAZOBACTAM [Concomitant]
     Dosage: 9 G EV
     Dates: start: 20100530, end: 20100530

REACTIONS (6)
  - WEIGHT DECREASED [None]
  - FATIGUE [None]
  - DIARRHOEA [None]
  - ASCITES [None]
  - HAEMORRHAGIC EROSIVE GASTRITIS [None]
  - HEPATIC FAILURE [None]
